FAERS Safety Report 5769884-9 (Version None)
Quarter: 2008Q2

REPORT INFORMATION
  Report Type: 
  Country: None (occurrence: None)
  Receive Date: 20080613
  Receipt Date: 20080411
  Transmission Date: 20081010
  Serious: No
  Sender: FDA-Public Use
  Company Number: US-ABBOTT-08P-163-0447003-00

PATIENT
  Sex: Female
  Weight: 112.59 kg

DRUGS (5)
  1. HUMIRA [Suspect]
     Indication: PSORIASIS
     Route: 058
     Dates: start: 20070201, end: 20071201
  2. HUMIRA [Suspect]
     Indication: PSORIATIC ARTHROPATHY
     Route: 058
     Dates: start: 20071201, end: 20080301
  3. HUMIRA [Suspect]
     Dates: start: 20080301
  4. AMITRIPTYLINE HCL [Concomitant]
     Indication: INSOMNIA
     Route: 048
  5. RANITIDINE [Concomitant]
     Indication: DYSPEPSIA
     Route: 048
     Dates: start: 20080301

REACTIONS (4)
  - ACCIDENTAL NEEDLE STICK [None]
  - ARTHROPOD BITE [None]
  - HELICOBACTER INFECTION [None]
  - UNDERDOSE [None]
